FAERS Safety Report 5574079-8 (Version None)
Quarter: 2007Q4

REPORT INFORMATION
  Report Type: 
  Country: None (occurrence: None)
  Receive Date: 20071221
  Receipt Date: 20071130
  Transmission Date: 20080405
  Serious: Yes (Hospitalization)
  Sender: FDA-Public Use
  Company Number: S07-UKI-05382-01

PATIENT
  Age: 17 Year
  Sex: Male

DRUGS (11)
  1. ESCITALOPRAM [Suspect]
     Indication: ANXIETY
     Dosage: 5 MG QD PO
     Route: 048
     Dates: start: 20070710, end: 20070716
  2. ESCITALOPRAM [Suspect]
     Indication: PANIC ATTACK
     Dosage: 5 MG QD PO
     Route: 048
     Dates: start: 20070710, end: 20070716
  3. ESCITALOPRAM [Suspect]
     Indication: ANXIETY
     Dosage: 10 MG QD PO
     Route: 048
     Dates: start: 20070717, end: 20070717
  4. ESCITALOPRAM [Suspect]
     Indication: PANIC ATTACK
     Dosage: 10 MG QD PO
     Route: 048
     Dates: start: 20070717, end: 20070717
  5. ESCITALOPRAM [Suspect]
     Indication: ANXIETY
     Dosage: 5 MG QD PO
     Route: 048
     Dates: start: 20070718, end: 20070701
  6. ESCITALOPRAM [Suspect]
     Indication: PANIC ATTACK
     Dosage: 5 MG QD PO
     Route: 048
     Dates: start: 20070718, end: 20070701
  7. ESCITALOPRAM [Suspect]
     Indication: ANXIETY
     Dosage: 2.5 MG QD PO
     Route: 048
     Dates: start: 20070701, end: 20070728
  8. ESCITALOPRAM [Suspect]
     Indication: PANIC ATTACK
     Dosage: 2.5 MG QD PO
     Route: 048
     Dates: start: 20070701, end: 20070728
  9. PROPRANOLOL [Concomitant]
  10. ATENOLOL [Concomitant]
  11. OMEPRAZOLE [Concomitant]

REACTIONS (38)
  - AGGRESSION [None]
  - ANGER [None]
  - ANOREXIA [None]
  - ANXIETY [None]
  - ASTHENIA [None]
  - CARDIAC DISORDER [None]
  - CHEST PAIN [None]
  - COLD SWEAT [None]
  - CONDUCTION DISORDER [None]
  - DEPRESSION [None]
  - DIARRHOEA [None]
  - DIZZINESS [None]
  - DRUG WITHDRAWAL SYNDROME [None]
  - DYSPNOEA [None]
  - EUPHORIC MOOD [None]
  - EXTRASYSTOLES [None]
  - FEAR [None]
  - FEELING ABNORMAL [None]
  - FEELING HOT [None]
  - FRUSTRATION [None]
  - HEADACHE [None]
  - HEART RATE DECREASED [None]
  - HYPERHIDROSIS [None]
  - HYPOAESTHESIA [None]
  - INTENTIONAL SELF-INJURY [None]
  - MALAISE [None]
  - MOOD ALTERED [None]
  - MUSCULAR WEAKNESS [None]
  - MUSCULOSKELETAL STIFFNESS [None]
  - NAUSEA [None]
  - PAIN IN EXTREMITY [None]
  - PALPITATIONS [None]
  - PULSE ABNORMAL [None]
  - PULSE PRESSURE DECREASED [None]
  - RESPIRATORY DISORDER [None]
  - SENSORY DISTURBANCE [None]
  - SUICIDAL IDEATION [None]
  - VISION BLURRED [None]
